FAERS Safety Report 10246948 (Version 1)
Quarter: 2014Q2

REPORT INFORMATION
  Report Type: Spontaneous
  Country: US (occurrence: None)
  Receive Date: 20140617
  Receipt Date: 20140617
  Transmission Date: 20141212
  Serious: Yes (Hospitalization)
  Sender: FDA-Public Use
  Company Number: None

PATIENT
  Age: 73 Year
  Sex: Male
  Weight: 71.6 kg

DRUGS (6)
  1. 5-FLUOROURACIL [Suspect]
  2. LEUCOVORIN CALCIUM [Suspect]
  3. ELOXATIN [Suspect]
  4. ATENOLOL [Concomitant]
  5. HYDROCHLOROTHIAZIDE [Concomitant]
  6. RAMIPRIL [Concomitant]

REACTIONS (3)
  - Abdominal pain [None]
  - Gastrointestinal perforation [None]
  - Peritonitis [None]
